FAERS Safety Report 6279612-9 (Version None)
Quarter: 2009Q3

REPORT INFORMATION
  Report Type: 
  Country: None (occurrence: None)
  Receive Date: 20090723
  Receipt Date: 20090715
  Transmission Date: 20100115
  Serious: Yes (Hospitalization)
  Sender: FDA-Public Use
  Company Number: B0363617A

PATIENT
  Sex: Male
  Weight: 77 kg

DRUGS (3)
  1. ROPINIROLE [Suspect]
     Indication: PARKINSON'S DISEASE
     Dates: start: 20041204
  2. SULFASALAZINE [Suspect]
     Indication: ARTHRITIS
     Dosage: 1G TWICE PER DAY
     Route: 048
     Dates: start: 20000101
  3. ENARENAL [Suspect]
     Dosage: 5MG PER DAY
     Route: 048
     Dates: start: 20041201

REACTIONS (2)
  - NON-CARDIAC CHEST PAIN [None]
  - SPINAL OSTEOARTHRITIS [None]
